FAERS Safety Report 20706927 (Version 3)
Quarter: 2022Q2

REPORT INFORMATION
  Report Type: Spontaneous
  Country: US (occurrence: US)
  Receive Date: 20220413
  Receipt Date: 20220510
  Transmission Date: 20220721
  Serious: Yes (Hospitalization, Other)
  Sender: FDA-Public Use
  Company Number: US-PHARMAAND-2022PHR00114

PATIENT
  Age: 70 Year
  Sex: Female

DRUGS (15)
  1. PEGASYS [Suspect]
     Active Substance: PEGINTERFERON ALFA-2A
     Indication: Eosinophilia
     Dosage: 45 MG, 1X/WEEK
     Route: 058
     Dates: start: 20210922, end: 20211021
  2. PEGASYS [Suspect]
     Active Substance: PEGINTERFERON ALFA-2A
     Dosage: 90 MG, 1X/WEEK
     Route: 058
     Dates: start: 20211022, end: 20211121
  3. PEGASYS [Suspect]
     Active Substance: PEGINTERFERON ALFA-2A
     Dosage: 135 MG, 1X/WEEK
     Route: 058
     Dates: start: 20211122, end: 20211221
  4. PEGASYS [Suspect]
     Active Substance: PEGINTERFERON ALFA-2A
     Dosage: 180 MG, 1X/WEEK
     Route: 058
     Dates: start: 20211222
  5. FAMOTIDINE [Concomitant]
     Active Substance: FAMOTIDINE
     Dosage: 40 MG, 1X/DAY
     Route: 048
     Dates: start: 20210910
  6. FERRALET [Concomitant]
     Dosage: 90 UNK, 1X/DAY
     Route: 048
     Dates: start: 20210105
  7. ONDANSETRON [Concomitant]
     Active Substance: ONDANSETRON
     Dosage: 4 MG, AS NEEDED EVERY 4 HOURS
     Route: 048
  8. MULTIPLE VITAMIN WITH MINERALS [Concomitant]
     Dosage: 1 TABLETS, 1X/DAY
     Route: 048
  9. PROBIOTICS NOS [Concomitant]
     Active Substance: PROBIOTICS NOS
     Dosage: 1 CAPSULES, 1X/DAY
     Route: 048
  10. VITAMIN D3 [Concomitant]
     Active Substance: CHOLECALCIFEROL
  11. VITAMIN C [Concomitant]
     Active Substance: ASCORBIC ACID
     Dosage: 500 MG, 1X/DAY
     Route: 048
  12. BALSALAZIDE [Concomitant]
     Active Substance: BALSALAZIDE
     Dosage: 3000 MG, 1X/DAY
     Route: 048
  13. MIRTAZAPINE [Concomitant]
     Active Substance: MIRTAZAPINE
     Dosage: 40 MG, 1X/DAY
     Route: 048
  14. BIOTIN [Concomitant]
     Active Substance: BIOTIN
     Dosage: 2.5 MG, 1X/DAY
     Route: 048
  15. METOPROLOL TARTRATE [Concomitant]
     Active Substance: METOPROLOL TARTRATE
     Dosage: 25 MG, 2X/DAY
     Route: 048

REACTIONS (11)
  - Acute left ventricular failure [Not Recovered/Not Resolved]
  - Heparin-induced thrombocytopenia [Unknown]
  - Pleural effusion [Unknown]
  - Congestive cardiomyopathy [Not Recovered/Not Resolved]
  - Deep vein thrombosis [Unknown]
  - Staphylococcal sepsis [Unknown]
  - Hypertension [Not Recovered/Not Resolved]
  - Memory impairment [Not Recovered/Not Resolved]
  - Unevaluable event [Not Recovered/Not Resolved]
  - Off label use [Unknown]
  - Abdominal pain [Unknown]

NARRATIVE: CASE EVENT DATE: 20211001
